FAERS Safety Report 9931279 (Version 2)
Quarter: 2014Q1

REPORT INFORMATION
  Report Type: Report from Study
  Country: BE (occurrence: BE)
  Receive Date: 20140228
  Receipt Date: 20140228
  Transmission Date: 20141002
  Serious: Yes (Other)
  Sender: FDA-Public Use
  Company Number: PHHO2012BE002590

PATIENT
  Sex: 0

DRUGS (1)
  1. FTY [Suspect]
     Indication: RELAPSING-REMITTING MULTIPLE SCLEROSIS
     Dosage: 1.25 MG, UNK
     Dates: start: 200703

REACTIONS (3)
  - Supraventricular tachycardia [Recovered/Resolved]
  - Migraine [Unknown]
  - Raymond-Cestan syndrome [Unknown]
